FAERS Safety Report 24238806 (Version 4)
Quarter: 2024Q4

REPORT INFORMATION
  Report Type: Spontaneous
  Country: US (occurrence: US)
  Receive Date: 20240822
  Receipt Date: 20241022
  Transmission Date: 20250114
  Serious: Yes (Hospitalization, Other)
  Sender: BRISTOL-MYERS SQUIBB COMPANY
  Company Number: US-BRISTOL-MYERS SQUIBB COMPANY-2024-129739

PATIENT
  Age: 83 Year
  Sex: Female

DRUGS (2)
  1. POMALYST [Suspect]
     Active Substance: POMALIDOMIDE
     Indication: Therapeutic drug monitoring
     Dosage: TAKE 1 CAPSULE (1MG) BY MOUTH EVERY DAY FOR 21 DAYS FOLLOWED BY 7 DAYS OFF/TAKE 1 CAPSULE BY MOUTH O
     Route: 048
  2. POMALYST [Suspect]
     Active Substance: POMALIDOMIDE
     Dosage: TAKE 1 CAPSULE BY MOUTH EVERY DAY FOR 21 DAYS FOLLOWED BY 7 DAYS OFF
     Route: 048

REACTIONS (13)
  - Peripheral swelling [Not Recovered/Not Resolved]
  - COVID-19 [Recovered/Resolved]
  - Plasma cell myeloma [Recovering/Resolving]
  - Off label use [Unknown]
  - Chronic obstructive pulmonary disease [Unknown]
  - Cardiac failure congestive [Unknown]
  - Decreased appetite [Recovering/Resolving]
  - Dysphagia [Unknown]
  - Diarrhoea [Unknown]
  - Urticaria [Unknown]
  - Dysgeusia [Unknown]
  - Depression [Unknown]
  - Hypotension [Recovering/Resolving]
